FAERS Safety Report 8431043-9 (Version None)
Quarter: 2012Q2

REPORT INFORMATION
  Report Type: 
  Country: None (occurrence: None)
  Receive Date: 20120612
  Receipt Date: 20120604
  Transmission Date: 20120825
  Serious: Yes (Death, Hospitalization, Other)
  Sender: FDA-Public Use
  Company Number: US-BAXTER-2012BAX005992

PATIENT
  Sex: Female

DRUGS (3)
  1. DIANEAL [Suspect]
     Route: 033
  2. DIANEAL [Suspect]
     Route: 033
  3. DIANEAL [Suspect]
     Indication: PERITONEAL DIALYSIS
     Route: 033

REACTIONS (6)
  - RENAL CANCER [None]
  - HYPOTENSION [None]
  - INTESTINAL PERFORATION [None]
  - RENAL CANCER METASTATIC [None]
  - DEHYDRATION [None]
  - SEPSIS [None]
